FAERS Safety Report 9085457 (Version 1)
Quarter: 2013Q1

REPORT INFORMATION
  Report Type: Report from Study
  Country: US (occurrence: US)
  Receive Date: 20130131
  Receipt Date: 20130131
  Transmission Date: 20140127
  Serious: No
  Sender: FDA-Public Use
  Company Number: US-ABBOTT-12P-163-0997598-00

PATIENT
  Age: 58 Year
  Sex: Male

DRUGS (19)
  1. HUMIRA [Suspect]
     Indication: CROHN^S DISEASE
     Dosage: LOADING DOSE
     Dates: start: 20121010, end: 20121010
  2. HUMIRA [Suspect]
     Dates: start: 20121025, end: 20121025
  3. HUMIRA [Suspect]
  4. RANITIDINE [Concomitant]
     Indication: GASTRIC DISORDER
  5. HYOSCYAMINE [Concomitant]
     Indication: ABDOMINAL PAIN UPPER
     Dosage: .125MG 1-2 TABLET EVERY 6 HOURS AS NEEDED
  6. POLYETHYLENE GLYCOL [Concomitant]
     Indication: CONSTIPATION
     Dosage: EVERY OTHER DAY
  7. BISACODYL [Concomitant]
     Indication: CONSTIPATION
     Dosage: 5MG AS NEEDED
  8. OXYBUTYNIN [Concomitant]
     Indication: DYSURIA
  9. CODEINE ACETAMINOPHEN [Concomitant]
     Indication: NEURALGIA
     Dosage: 1/2 TABLET AS NEEDED
  10. AMITRIPTYLINE [Concomitant]
     Indication: INSOMNIA
     Dosage: 25MG 1/2 TABLET
  11. DIVALPROEX [Concomitant]
     Indication: NEURALGIA
     Dosage: 250MG 3 TABLETS TWO TIMES DAILY
  12. OXCARBAZEPINE [Concomitant]
     Indication: PAIN
     Dosage: 300MG 3 TABLETS TWO TIMES DAILY
  13. ASPIRIN [Concomitant]
     Indication: CARDIOVASCULAR EVENT PROPHYLAXIS
     Dosage: 81MG DAILY
  14. VITAMINS [Concomitant]
     Indication: VITAMIN SUPPLEMENTATION
     Dosage: DAILY
  15. BUDESONIDE [Concomitant]
     Indication: CROHN^S DISEASE
  16. CITALOPRAM [Concomitant]
     Indication: DEPRESSION
  17. DULCOLAX [Concomitant]
     Indication: PRODUCT USED FOR UNKNOWN INDICATION
  18. MIRALAX [Concomitant]
     Indication: PRODUCT USED FOR UNKNOWN INDICATION
  19. OXCARBAZEPINE [Concomitant]
     Indication: NERVOUS SYSTEM DISORDER

REACTIONS (4)
  - Abdominal pain lower [Not Recovered/Not Resolved]
  - Crohn^s disease [Not Recovered/Not Resolved]
  - Injection site pain [Not Recovered/Not Resolved]
  - Inappropriate schedule of drug administration [Not Recovered/Not Resolved]
